FAERS Safety Report 4687882-3 (Version None)
Quarter: 2005Q2

REPORT INFORMATION
  Report Type: 
  Country: None (occurrence: None)
  Receive Date: 20050608
  Receipt Date: 20050608
  Transmission Date: 20051028
  Serious: Yes (Other)
  Sender: FDA-Public Use
  Company Number: None

PATIENT
  Sex: Female
  Weight: 58.86 kg

DRUGS (1)
  1. GEMCITABINE [Suspect]
     Indication: PANCREATIC CARCINOMA
     Dosage: 1000 MG/M2: THE FIRST TREATMENT CONSISTED OF WEEKLY TREATMENTS FOR FOUR WEEKS.  ALL SUBSEQUENT TREAT
     Dates: start: 20050113

REACTIONS (10)
  - ASCITES [None]
  - BLOOD PRESSURE DIASTOLIC DECREASED [None]
  - GASTROINTESTINAL ULCER [None]
  - INTESTINAL ISCHAEMIA [None]
  - INTESTINAL OBSTRUCTION [None]
  - LOSS OF CONSCIOUSNESS [None]
  - MALIGNANT NEOPLASM PROGRESSION [None]
  - OVARIAN CYST [None]
  - RESPIRATORY RATE INCREASED [None]
  - VENOOCCLUSIVE LIVER DISEASE [None]
